FAERS Safety Report 8189297-2 (Version None)
Quarter: 2012Q1

REPORT INFORMATION
  Report Type: 
  Country: None (occurrence: None)
  Receive Date: 20120302
  Receipt Date: 20120222
  Transmission Date: 20120608
  Serious: Yes (Hospitalization, Other)
  Sender: FDA-Public Use
  Company Number: INT_00055_2012

PATIENT
  Age: 67 Year
  Sex: Male

DRUGS (7)
  1. ACETYLSALICYLIC ACID SRT [Concomitant]
  2. CEFEPIME [Suspect]
     Indication: PNEUMONIA
     Dosage: 1 G QD
  3. CLONAZEPAM [Concomitant]
  4. FUROSEMIDE [Concomitant]
  5. CARVEDILOL [Concomitant]
  6. CIPROFLOXACIN [Concomitant]
  7. CAPTOPRIL [Concomitant]

REACTIONS (1)
  - ACUTE GENERALISED EXANTHEMATOUS PUSTULOSIS [None]
